FAERS Safety Report 6412428-9 (Version None)
Quarter: 2009Q4

REPORT INFORMATION
  Report Type: 
  Country: None (occurrence: None)
  Receive Date: 20091023
  Receipt Date: 20091020
  Transmission Date: 20100525
  Serious: Yes (Other)
  Sender: FDA-Public Use
  Company Number: IT-MERCK-0909ITA00014

PATIENT
  Age: 70 Year
  Sex: Female

DRUGS (7)
  1. PRIMAXIN [Suspect]
     Indication: BRONCHOPNEUMONIA
     Route: 041
     Dates: start: 20090716, end: 20090725
  2. CARVEDILOL [Concomitant]
     Indication: CARDIAC FAILURE
     Route: 048
     Dates: start: 20090716, end: 20090731
  3. AMIODARONE [Concomitant]
     Indication: ATRIAL FIBRILLATION
     Route: 048
     Dates: start: 20090716, end: 20090731
  4. CLINDAMYCIN PHOSPHATE [Concomitant]
     Indication: BRONCHOPNEUMONIA
     Route: 042
     Dates: start: 20090716, end: 20090731
  5. QUETIAPINE FUMARATE [Concomitant]
     Route: 048
     Dates: start: 20090716, end: 20090731
  6. PANTOPRAZOLE SODIUM [Concomitant]
     Indication: PROPHYLAXIS AGAINST GASTROINTESTINAL ULCER
     Route: 048
     Dates: start: 20090716, end: 20090731
  7. ALLOPURINOL [Concomitant]
     Route: 048
     Dates: start: 20090716, end: 20090731

REACTIONS (1)
  - ERYTHEMA [None]
